FAERS Safety Report 12201029 (Version 1)
Quarter: 2016Q1

REPORT INFORMATION
  Report Type: Spontaneous
  Country: US (occurrence: US)
  Receive Date: 20160322
  Receipt Date: 20160322
  Transmission Date: 20160526
  Serious: No
  Sender: FDA-Public Use
  Company Number: US-MYLANLABS-2016M1005175

PATIENT
  Age: 71 Year
  Sex: Female
  Weight: 54.42 kg

DRUGS (3)
  1. CYCLOBENZAPRINE MYLAN [Concomitant]
     Indication: FIBROMYALGIA
     Dosage: 10 MG, HS
     Route: 048
     Dates: start: 1995
  2. CELECOXIB. [Suspect]
     Active Substance: CELECOXIB
     Indication: OFF LABEL USE
  3. CELECOXIB. [Suspect]
     Active Substance: CELECOXIB
     Indication: FIBROMYALGIA
     Dosage: 100 MG, BID
     Route: 048
     Dates: start: 20160127, end: 20160201

REACTIONS (1)
  - Drug ineffective for unapproved indication [Recovered/Resolved]

NARRATIVE: CASE EVENT DATE: 20160127
